FAERS Safety Report 9816943 (Version 1)
Quarter: 2014Q1

REPORT INFORMATION
  Report Type: Spontaneous
  Country: US (occurrence: US)
  Receive Date: 20140114
  Receipt Date: 20140114
  Transmission Date: 20141002
  Serious: Yes (Other)
  Sender: FDA-Public Use
  Company Number: US-GLAXOSMITHKLINE-A0876341A

PATIENT
  Age: 71 Year
  Sex: Male

DRUGS (7)
  1. ADVAIR [Suspect]
     Indication: CHRONIC OBSTRUCTIVE PULMONARY DISEASE
     Dosage: 1PUFF PER DAY
     Route: 055
     Dates: start: 200010
  2. NADOLOL [Concomitant]
  3. AMLODIPINE [Concomitant]
  4. PRAVASTATIN [Concomitant]
  5. ASPIRIN [Concomitant]
  6. VITAMIN [Concomitant]
  7. TYLENOL PM [Concomitant]

REACTIONS (4)
  - Renal failure chronic [Unknown]
  - Fatigue [Unknown]
  - Treatment noncompliance [Unknown]
  - Product quality issue [Unknown]
